FAERS Safety Report 12802019 (Version 1)
Quarter: 2016Q4

REPORT INFORMATION
  Report Type: Spontaneous
  Country: US (occurrence: US)
  Receive Date: 20161003
  Receipt Date: 20161003
  Transmission Date: 20170207
  Serious: No
  Sender: FDA-Public Use
  Company Number: US-JAZZ-2016-US-011980

PATIENT
  Sex: Female

DRUGS (20)
  1. EFFEXOR [Concomitant]
     Active Substance: VENLAFAXINE HYDROCHLORIDE
  2. MODAFINIL. [Concomitant]
     Active Substance: MODAFINIL
  3. TRAMADOL. [Concomitant]
     Active Substance: TRAMADOL
  4. CIPROFLOXACIN HYDROCHLORIDE. [Concomitant]
     Active Substance: CIPROFLOXACIN HYDROCHLORIDE
  5. KLOR-CON [Concomitant]
     Active Substance: POTASSIUM CHLORIDE
  6. ASPIRIN. [Concomitant]
     Active Substance: ASPIRIN
  7. HAIR, SKIN + NAILS [Concomitant]
     Active Substance: MINERALS\VITAMINS
  8. RITALIN [Concomitant]
     Active Substance: METHYLPHENIDATE HYDROCHLORIDE
  9. XYREM [Suspect]
     Active Substance: SODIUM OXYBATE
     Dosage: 3 G, BID
     Route: 048
     Dates: start: 200902
  10. NAUZENE [Concomitant]
     Active Substance: DEXTROSE\FRUCTOSE\TRISODIUM CITRATE DIHYDRATE
  11. LASIX [Concomitant]
     Active Substance: FUROSEMIDE
  12. FLEXERIL [Concomitant]
     Active Substance: CYCLOBENZAPRINE HYDROCHLORIDE
  13. XYREM [Suspect]
     Active Substance: SODIUM OXYBATE
     Indication: NARCOLEPSY
     Dosage: 1.5 G, BID
     Route: 048
     Dates: start: 200405, end: 2004
  14. XYREM [Suspect]
     Active Substance: SODIUM OXYBATE
     Indication: CATAPLEXY
     Dosage: 1.5 G, BID
     Route: 048
     Dates: start: 200504, end: 200902
  15. METOPROLOL. [Concomitant]
     Active Substance: METOPROLOL
  16. TOPAMAX [Concomitant]
     Active Substance: TOPIRAMATE
  17. NEXIUM [Concomitant]
     Active Substance: ESOMEPRAZOLE MAGNESIUM
  18. LYRICA [Concomitant]
     Active Substance: PREGABALIN
  19. ONE DAILY [Concomitant]
  20. OXYCODONE [Concomitant]
     Active Substance: OXYCODONE

REACTIONS (1)
  - Urinary tract infection [Unknown]
